FAERS Safety Report 13380168 (Version 4)
Quarter: 2017Q2

REPORT INFORMATION
  Report Type: Report from Study
  Country: JP (occurrence: JP)
  Receive Date: 20170328
  Receipt Date: 20170609
  Transmission Date: 20170830
  Serious: Yes (Death, Other)
  Sender: FDA-Public Use
  Company Number: JP-ALXN-A201703077AA

PATIENT
  Age: 85 Year
  Sex: Female

DRUGS (5)
  1. CEFTRIAXONE. [Concomitant]
     Active Substance: CEFTRIAXONE
     Indication: INFECTION PROPHYLAXIS
     Dosage: 1 G, QD
     Route: 065
     Dates: start: 20170317, end: 20170325
  2. SOLIRIS [Suspect]
     Active Substance: ECULIZUMAB
     Indication: HAEMOLYTIC URAEMIC SYNDROME
     Dosage: 900 MG, SINGLE
     Route: 042
     Dates: start: 20170317, end: 20170317
  3. PREDONINE [Concomitant]
     Active Substance: PREDNISOLONE
     Indication: HAEMOLYTIC URAEMIC SYNDROME
     Dosage: 40 MG, QD
     Route: 041
     Dates: start: 20170316, end: 20170317
  4. PREDONINE [Concomitant]
     Active Substance: PREDNISOLONE
     Indication: THROMBOTIC MICROANGIOPATHY
     Dosage: UNK
     Route: 065
  5. SOLIRIS [Suspect]
     Active Substance: ECULIZUMAB
     Dosage: 900 MG, SINGLE
     Route: 042
     Dates: start: 20170324, end: 20170324

REACTIONS (2)
  - Cardiac failure [Fatal]
  - Respiratory failure [Fatal]

NARRATIVE: CASE EVENT DATE: 20170317
